FAERS Safety Report 19053957 (Version 4)
Quarter: 2021Q2

REPORT INFORMATION
  Report Type: Report from Study
  Country: US (occurrence: US)
  Receive Date: 20210324
  Receipt Date: 20210507
  Transmission Date: 20210717
  Serious: Yes (Death, Hospitalization)
  Sender: FDA-Public Use
  Company Number: US-JNJFOC-20210331128

PATIENT
  Age: 59 Year
  Sex: Male
  Weight: 62.7 kg

DRUGS (2)
  1. EPOPROSTENOL SODIUM. [Suspect]
     Active Substance: EPOPROSTENOL SODIUM
     Indication: PULMONARY ARTERIAL HYPERTENSION
     Route: 042
  2. ELIQUIS [Concomitant]
     Active Substance: APIXABAN

REACTIONS (13)
  - Death [Fatal]
  - Syncope [Unknown]
  - Hypokalaemia [Unknown]
  - Abdominal pain [Unknown]
  - Oxygen saturation decreased [Unknown]
  - Respiratory failure [Unknown]
  - Unresponsive to stimuli [Unknown]
  - Blood glucose decreased [Unknown]
  - Hypoxia [Unknown]
  - Loss of consciousness [Unknown]
  - Heart rate decreased [Unknown]
  - Cardiac failure congestive [Unknown]
  - Vomiting [Unknown]

NARRATIVE: CASE EVENT DATE: 20210301
